FAERS Safety Report 9127065 (Version 3)
Quarter: 2013Q2

REPORT INFORMATION
  Report Type: Spontaneous
  Country: US (occurrence: US)
  Receive Date: 20130228
  Receipt Date: 20130410
  Transmission Date: 20140414
  Serious: Yes (Other)
  Sender: FDA-Public Use
  Company Number: PHEH2013US001731

PATIENT
  Age: 52 Year
  Sex: Male
  Weight: 86.62 kg

DRUGS (5)
  1. FORADIL [Suspect]
     Indication: ASTHMA
     Dosage: 1 DF, BID
     Route: 048
     Dates: start: 20121129, end: 20130113
  2. FLOVENT [Concomitant]
     Indication: ASTHMA
     Dosage: 1 DF, BID
     Dates: start: 20121129, end: 20130114
  3. ALBUTEROL [Concomitant]
     Indication: ASTHMA
     Dosage: 2 DF, UNK
  4. ZYRTEC [Concomitant]
     Indication: RHINITIS ALLERGIC
     Dosage: 10 MG, QHS
     Route: 048
  5. BECLOMETHASONE DIPROPIONATE [Concomitant]
     Dosage: UNK UKN, UNK

REACTIONS (6)
  - Haemoptysis [Recovering/Resolving]
  - Cough [Recovering/Resolving]
  - Oropharyngeal pain [Recovering/Resolving]
  - Incorrect dose administered [Unknown]
  - Device issue [Recovering/Resolving]
  - Choking [Recovering/Resolving]
